FAERS Safety Report 8791664 (Version 1)
Quarter: 2012Q4

REPORT INFORMATION
  Report Type: 
  Country: GB (occurrence: GB)
  Receive Date: 20120918
  Receipt Date: 20120918
  Transmission Date: 20130627
  Serious: Yes (Death, Other)
  Sender: FDA-Public Use
  Company Number: PHHY2012GB080249

PATIENT
  Age: 9 Month

DRUGS (5)
  1. CICLOSPORIN [Suspect]
     Indication: ACUTE LYMPHOCYTIC LEUKAEMIA
     Dosage: 3 mg/kg, QD
  2. CYCLOPHOSPHAMIDE [Suspect]
     Indication: ACUTE LYMPHOCYTIC LEUKAEMIA
     Dosage: 60 mg/kg, BID
  3. METHYLPREDNISOLONE [Suspect]
     Indication: ACUTE LYMPHOCYTIC LEUKAEMIA
     Dosage: 01 mg/kg, QD
  4. TREOSULFAN [Suspect]
     Indication: ACUTE LYMPHOCYTIC LEUKAEMIA
     Dosage: UNK
  5. ANTITHYMOCYTE IMMUNOGLOBULIN [Suspect]
     Indication: ACUTE LYMPHOCYTIC LEUKAEMIA
     Dosage: 2.5 mg/kg, Q6H

REACTIONS (3)
  - Bone marrow failure [Fatal]
  - Graft versus host disease [Unknown]
  - Klebsiella infection [Unknown]
